FAERS Safety Report 13964157 (Version 2)
Quarter: 2018Q4

REPORT INFORMATION
  Report Type: Spontaneous
  Country: GB (occurrence: GB)
  Receive Date: 20170913
  Receipt Date: 20181106
  Transmission Date: 20190204
  Serious: Yes (Life-Threatening, Other)
  Sender: FDA-Public Use
  Company Number: GB-PFIZER INC-2017392671

PATIENT
  Age: 30 Year
  Sex: Male
  Weight: 106 kg

DRUGS (2)
  1. NOVOMIX [Concomitant]
     Active Substance: INSULIN ASPART
     Indication: DIABETES MELLITUS
     Dosage: 32 UNITS AND 38 UNITS
     Dates: start: 2007
  2. GABAPENTIN. [Suspect]
     Active Substance: GABAPENTIN
     Indication: NEURALGIA
     Dosage: 300 MG, DAILY
     Dates: start: 201304, end: 201306

REACTIONS (2)
  - Skin induration [Not Recovered/Not Resolved]
  - Tendon rupture [Recovered/Resolved]
